FAERS Safety Report 7506724-1 (Version None)
Quarter: 2011Q2

REPORT INFORMATION
  Report Type: 
  Country: None (occurrence: None)
  Receive Date: 20110526
  Receipt Date: 20110512
  Transmission Date: 20111010
  Serious: Yes (Other)
  Sender: FDA-Public Use
  Company Number: US-JNJFOC-20110506597

PATIENT
  Sex: Male
  Weight: 85.28 kg

DRUGS (1)
  1. REMICADE [Suspect]
     Indication: PSORIATIC ARTHROPATHY
     Route: 042
     Dates: start: 20110101

REACTIONS (3)
  - VISION BLURRED [None]
  - NEUROPATHY PERIPHERAL [None]
  - HEADACHE [None]
